FAERS Safety Report 23209478 (Version 3)
Quarter: 2024Q1

REPORT INFORMATION
  Report Type: Spontaneous
  Country: JP (occurrence: JP)
  Receive Date: 20231121
  Receipt Date: 20240219
  Transmission Date: 20240410
  Serious: Yes (Hospitalization, Other)
  Sender: FDA-Public Use
  Company Number: JP-ONO-2023JP028109

PATIENT
  Age: 72 Year
  Sex: Male
  Weight: 55.9 kg

DRUGS (4)
  1. OPDIVO [Suspect]
     Active Substance: NIVOLUMAB
     Indication: Gastric cancer
     Route: 041
     Dates: start: 20221212, end: 20230821
  2. OXALIPLATIN [Suspect]
     Active Substance: OXALIPLATIN
     Indication: Gastric cancer
     Route: 041
     Dates: start: 20221212
  3. OXALIPLATIN [Suspect]
     Active Substance: OXALIPLATIN
     Route: 041
  4. GIMERACIL\OTERACIL\TEGAFUR [Concomitant]
     Active Substance: GIMERACIL\OTERACIL POTASSIUM\TEGAFUR
     Indication: Gastric cancer
     Dates: start: 20221212

REACTIONS (6)
  - Jaundice cholestatic [Recovered/Resolved]
  - Venoocclusive liver disease [Recovering/Resolving]
  - Immune-mediated adrenal insufficiency [Not Recovered/Not Resolved]
  - Nasopharyngitis [Unknown]
  - Malignant neoplasm progression [Unknown]
  - Biliary obstruction [Unknown]

NARRATIVE: CASE EVENT DATE: 20230313
